FAERS Safety Report 8196891-1 (Version None)
Quarter: 2012Q1

REPORT INFORMATION
  Report Type: 
  Country: None (occurrence: None)
  Receive Date: 20120309
  Receipt Date: 20120301
  Transmission Date: 20120608
  Serious: Yes (Other)
  Sender: FDA-Public Use
  Company Number: US-US-EMD SERONO, INC.-7013416

PATIENT
  Sex: Male
  Weight: 93 kg

DRUGS (2)
  1. VITAMIN TAB [Concomitant]
  2. REBIF [Suspect]
     Indication: MULTIPLE SCLEROSIS
     Route: 058
     Dates: start: 20100514, end: 20101201

REACTIONS (3)
  - INJECTION SITE ERYTHEMA [None]
  - SUPRAVENTRICULAR TACHYARRHYTHMIA [None]
  - HYPERTENSION [None]
